FAERS Safety Report 5674464-X (Version None)
Quarter: 2008Q2

REPORT INFORMATION
  Report Type: 
  Country: None (occurrence: None)
  Receive Date: 20080303
  Receipt Date: 20070430
  Transmission Date: 20081010
  Serious: Yes (Other)
  Sender: FDA-Public Use
  Company Number: MK-6033081

PATIENT
  Age: 27 Year
  Sex: Female

DRUGS (4)
  1. AMNESTEEM [Suspect]
     Indication: ACNE
     Dosage: ORAL ; 40 MG;DAILY;ORAL
     Route: 048
     Dates: start: 20070223, end: 20070323
  2. AMNESTEEM [Suspect]
     Indication: ACNE
     Dosage: ORAL ; 40 MG;DAILY;ORAL
     Route: 048
     Dates: start: 20070411, end: 20070418
  3. AMNESTEEM [Suspect]
     Indication: ACNE
  4. ACCUTANE [Suspect]
     Indication: ACNE
     Dosage: ORAL
     Route: 048

REACTIONS (1)
  - TRANSAMINASES INCREASED [None]
